FAERS Safety Report 24545573 (Version 2)
Quarter: 2024Q4

REPORT INFORMATION
  Report Type: Spontaneous
  Country: IT (occurrence: IT)
  Receive Date: 20241024
  Receipt Date: 20241031
  Transmission Date: 20250115
  Serious: Yes (Death, Hospitalization)
  Sender: SHIONOGI
  Company Number: IT-shionogi-202400001728

PATIENT
  Age: 63 Year
  Sex: Male

DRUGS (2)
  1. CEFIDEROCOL [Suspect]
     Active Substance: CEFIDEROCOL
     Indication: Haematological infection
  2. CEFIDEROCOL [Suspect]
     Active Substance: CEFIDEROCOL
     Indication: Pneumonia klebsiella

REACTIONS (2)
  - Haematological infection [Fatal]
  - Drug resistance [Unknown]
